FAERS Safety Report 14803456 (Version 2)
Quarter: 2018Q2

REPORT INFORMATION
  Report Type: Spontaneous
  Country: DE (occurrence: DE)
  Receive Date: 20180425
  Receipt Date: 20180518
  Transmission Date: 20180711
  Serious: Yes (Other)
  Sender: FDA-Public Use
  Company Number: DE-ROCHE-2109082

PATIENT
  Age: 53 Year
  Sex: Female

DRUGS (3)
  1. AVASTIN [Suspect]
     Active Substance: BEVACIZUMAB
     Indication: OVARIAN EPITHELIAL CANCER
     Dosage: 3 CYCLES GIVEN
     Route: 065
     Dates: start: 201601, end: 201604
  2. CARBOPLATIN. [Concomitant]
     Active Substance: CARBOPLATIN
     Indication: OVARIAN EPITHELIAL CANCER
     Dosage: AUC 5, 5 CYCLES GIVEN
     Route: 065
     Dates: start: 201601, end: 201604
  3. PACLITAXEL. [Concomitant]
     Active Substance: PACLITAXEL
     Indication: OVARIAN EPITHELIAL CANCER
     Dosage: 5 CYCLES GIVEN
     Route: 065
     Dates: start: 201601, end: 201604

REACTIONS (1)
  - Gastrointestinal disorder [Recovered/Resolved]
